FAERS Safety Report 4640804-3 (Version None)
Quarter: 2005Q2

REPORT INFORMATION
  Report Type: 
  Country: None (occurrence: None)
  Receive Date: 20050324
  Receipt Date: 20050202
  Transmission Date: 20051028
  Serious: No
  Sender: FDA-Public Use
  Company Number: 212182

PATIENT
  Age: 67 Year
  Sex: Male
  Weight: 82.1 kg

DRUGS (4)
  1. AVASTIN [Suspect]
     Indication: COLORECTAL CANCER METASTATIC
     Dosage: 380 MG, Q2W, INTRAVENOUS
     Route: 042
     Dates: start: 20040701
  2. FLUOROURACIL [Concomitant]
  3. LEUCOVORIN CALCIUM [Concomitant]
  4. CPT-11 (IRINOTECAN HYDROCHLORIDE) [Concomitant]

REACTIONS (2)
  - EPISTAXIS [None]
  - THROMBOCYTOPENIA [None]
